FAERS Safety Report 11353055 (Version 1)
Quarter: 2015Q3

REPORT INFORMATION
  Report Type: Spontaneous
  Country: US (occurrence: US)
  Receive Date: 20150807
  Receipt Date: 20150807
  Transmission Date: 20151125
  Serious: No
  Sender: FDA-Public Use
  Company Number: US-JNJFOC-20150301973

PATIENT
  Age: 59 Year
  Sex: Female
  Weight: 56.25 kg

DRUGS (3)
  1. WOMENS ROGAINE UNSCENTED [Suspect]
     Active Substance: MINOXIDIL
     Route: 061
  2. WOMENS ROGAINE UNSCENTED [Suspect]
     Active Substance: MINOXIDIL
     Indication: ALOPECIA
     Dosage: 1/2 CAP
     Route: 061
     Dates: start: 20150210, end: 20150225
  3. ^VITAMINS^ (NOS) [Concomitant]

REACTIONS (4)
  - Product use issue [Unknown]
  - Hair texture abnormal [Recovering/Resolving]
  - Headache [Unknown]
  - Alopecia [Recovering/Resolving]
